FAERS Safety Report 15237913 (Version 5)
Quarter: 2018Q3

REPORT INFORMATION
  Report Type: Spontaneous
  Country: US (occurrence: US)
  Receive Date: 20180803
  Receipt Date: 20180815
  Transmission Date: 20181010
  Serious: Yes (Hospitalization)
  Sender: FDA-Public Use
  Company Number: US-CELGENEUS-USA-20180709989

PATIENT
  Age: 5 Year
  Sex: Female

DRUGS (27)
  1. VENETOCLAX. [Suspect]
     Active Substance: VENETOCLAX
     Dosage: 350 MILLIGRAM
     Route: 065
     Dates: start: 20171116, end: 20171206
  2. GRANISETRON [Concomitant]
     Active Substance: GRANISETRON
     Indication: NAUSEA
     Dosage: 2 MILLIGRAM
     Route: 065
     Dates: start: 20171108
  3. ALLOPURINOL. [Concomitant]
     Active Substance: ALLOPURINOL
     Dosage: 100 MILLIGRAM
     Route: 065
     Dates: start: 20180112, end: 20180113
  4. GLUCOSE [Concomitant]
     Active Substance: DEXTROSE
     Indication: PROPHYLAXIS
     Dosage: 2 LITERS
     Route: 041
     Dates: start: 20171113, end: 20171117
  5. GRANISETRON [Concomitant]
     Active Substance: GRANISETRON
     Indication: PROPHYLAXIS OF NAUSEA AND VOMITING
  6. VIDAZA [Suspect]
     Active Substance: AZACITIDINE
     Indication: ACUTE MYELOID LEUKAEMIA
     Route: 058
     Dates: start: 20180112
  7. VENETOCLAX. [Suspect]
     Active Substance: VENETOCLAX
     Dosage: 170 MILLIGRAM
     Route: 065
     Dates: start: 20171207
  8. ENALAPRIL MALEATE. [Concomitant]
     Active Substance: ENALAPRIL MALEATE
     Indication: CARDIAC DISORDER
     Dosage: 2 MILLIGRAM
     Route: 065
     Dates: start: 20171106
  9. OXYCODONE HYDROCHLORIDE. [Concomitant]
     Active Substance: OXYCODONE HYDROCHLORIDE
     Indication: PAIN
     Dosage: 2 MILLIGRAM
     Route: 065
     Dates: start: 20171110
  10. OLANZAPINE. [Concomitant]
     Active Substance: OLANZAPINE
     Indication: NAUSEA
     Dosage: 2.5 MILLIGRAM
     Route: 065
     Dates: start: 20180315
  11. SULFAMETHOXAZOLE [Concomitant]
     Active Substance: SULFAMETHOXAZOLE
     Indication: PNEUMOCYSTIS JIROVECII PNEUMONIA
     Dosage: 60 MILLIGRAM
     Route: 065
     Dates: start: 20171114
  12. LORAZEPAM. [Concomitant]
     Active Substance: LORAZEPAM
     Indication: PROPHYLAXIS OF NAUSEA AND VOMITING
  13. LORAZEPAM. [Concomitant]
     Active Substance: LORAZEPAM
     Indication: NAUSEA
     Dosage: 2.4 MILLIGRAM
     Route: 065
     Dates: start: 20171108
  14. OMEPRAZOLE MAGNESIUM. [Concomitant]
     Active Substance: OMEPRAZOLE MAGNESIUM
     Indication: GASTROOESOPHAGEAL REFLUX DISEASE
     Dosage: 20 MILLIGRAM
     Route: 065
     Dates: start: 20171108
  15. ALLOPURINOL. [Concomitant]
     Active Substance: ALLOPURINOL
     Dosage: 100 MILLIGRAM
     Route: 065
     Dates: start: 20171207, end: 20171208
  16. VIDAZA [Suspect]
     Active Substance: AZACITIDINE
     Indication: REFRACTORY CANCER
     Dosage: 75 MILLIGRAM/SQ. METER
     Route: 058
     Dates: start: 20170528, end: 20170603
  17. VENETOCLAX. [Suspect]
     Active Substance: VENETOCLAX
     Indication: REFRACTORY CANCER
     Dosage: 80 MILLIGRAM
     Route: 065
     Dates: start: 20171114, end: 20171114
  18. MAGNESIUM CARBONATE [Concomitant]
     Active Substance: MAGNESIUM CARBONATE
     Indication: BLOOD MAGNESIUM
     Dosage: 54 MILLIGRAM
     Route: 065
     Dates: start: 20171108
  19. ALLOPURINOL. [Concomitant]
     Active Substance: ALLOPURINOL
     Dosage: 300 MILLIGRAM
     Route: 065
     Dates: start: 20180721
  20. GLUCOSE [Concomitant]
     Active Substance: DEXTROSE
     Dosage: 75 MILLILITER
     Route: 041
     Dates: start: 20171207, end: 20171208
  21. VENETOCLAX. [Suspect]
     Active Substance: VENETOCLAX
     Dosage: 170 MILLIGRAM
     Route: 065
     Dates: start: 20171115, end: 20171115
  22. COLECALCIFEROL [Concomitant]
     Active Substance: CHOLECALCIFEROL
     Indication: VITAMIN SUPPLEMENTATION
     Dosage: 2000 IU
     Route: 065
     Dates: start: 20171108
  23. OLANZAPINE. [Concomitant]
     Active Substance: OLANZAPINE
     Indication: VOMITING
  24. ALLOPURINOL. [Concomitant]
     Active Substance: ALLOPURINOL
     Indication: PROPHYLAXIS
     Dosage: 100 MILLIGRAM
     Route: 065
     Dates: start: 20171110, end: 20171117
  25. ACYCLOVIR SODIUM. [Concomitant]
     Active Substance: ACYCLOVIR SODIUM
     Indication: ANTIVIRAL PROPHYLAXIS
     Dosage: 1000 MILLIGRAM
     Route: 065
     Dates: start: 20171108
  26. LEVOFLOXACIN HEMIHYDRATE [Concomitant]
     Active Substance: LEVOFLOXACIN
     Indication: BACTERIAL INFECTION
     Dosage: 440 MILLIGRAM
     Route: 065
     Dates: start: 20171121
  27. GLUCOSE [Concomitant]
     Active Substance: DEXTROSE
     Dosage: 37 MILLILITER
     Route: 041
     Dates: start: 20180112, end: 20180113

REACTIONS (2)
  - Febrile neutropenia [Not Recovered/Not Resolved]
  - Colitis [Recovered/Resolved]

NARRATIVE: CASE EVENT DATE: 20180720
